FAERS Safety Report 17462566 (Version 2)
Quarter: 2020Q1

REPORT INFORMATION
  Report Type: Spontaneous
  Country: US (occurrence: US)
  Receive Date: 20200226
  Receipt Date: 20200302
  Transmission Date: 20200409
  Serious: No
  Sender: FDA-Public Use
  Company Number: US-009507513-2002USA007185

PATIENT
  Age: 66 Year
  Sex: Female
  Weight: 63.49 kg

DRUGS (12)
  1. ROPINIROLE. [Concomitant]
     Active Substance: ROPINIROLE
  2. AMLODIPINE [Concomitant]
     Active Substance: AMLODIPINE BESYLATE
  3. ORALHEALTH XYLIMELTS [Concomitant]
     Indication: ROUTINE HEALTH MAINTENANCE
  4. CALCIUM (UNSPECIFIED) [Concomitant]
     Active Substance: CALCIUM
     Indication: ROUTINE HEALTH MAINTENANCE
  5. AMANTADINE. [Suspect]
     Active Substance: AMANTADINE HYDROCHLORIDE
     Indication: DYSKINESIA
     Dosage: 274 MG 1X/DAY, AT BEDTIME
     Route: 048
     Dates: start: 20180803
  6. CYANOCOBALAMIN. [Concomitant]
     Active Substance: CYANOCOBALAMIN
     Indication: ROUTINE HEALTH MAINTENANCE
  7. VITAMIN D (UNSPECIFIED) [Concomitant]
     Active Substance: VITAMIN D NOS
     Indication: ROUTINE HEALTH MAINTENANCE
  8. SELEGILINE [Concomitant]
     Active Substance: SELEGILINE
  9. SINEMET [Suspect]
     Active Substance: CARBIDOPA\LEVODOPA
     Indication: PARKINSON^S DISEASE
     Dosage: 2 TABLETS 5X/DAY
     Route: 048
  10. AMANTADINE. [Suspect]
     Active Substance: AMANTADINE HYDROCHLORIDE
     Dosage: 27 4 MG 1X/DAY ORALLY AT BEDTIME
     Route: 048
     Dates: start: 201809
  11. CALCIUM CITRATE (+) VITAMIN D (UNSPECIFIED) [Concomitant]
     Active Substance: CALCIUM CITRATE\VITAMIN D
     Indication: ROUTINE HEALTH MAINTENANCE
  12. PRINIVIL [Suspect]
     Active Substance: LISINOPRIL
     Dosage: UNK
     Route: 048
     Dates: start: 201907

REACTIONS (13)
  - Feeling abnormal [Not Recovered/Not Resolved]
  - Nausea [Not Recovered/Not Resolved]
  - Swelling face [Not Recovered/Not Resolved]
  - Atrophy [Not Recovered/Not Resolved]
  - Fall [Not Recovered/Not Resolved]
  - Skin discolouration [Recovered/Resolved]
  - Dysphagia [Recovered/Resolved]
  - Dysgeusia [Not Recovered/Not Resolved]
  - Decreased appetite [Unknown]
  - Dry mouth [Not Recovered/Not Resolved]
  - Vomiting [Not Recovered/Not Resolved]
  - Bone contusion [Unknown]
  - Drug hypersensitivity [Unknown]

NARRATIVE: CASE EVENT DATE: 201907
